FAERS Safety Report 6749884-2 (Version None)
Quarter: 2010Q2

REPORT INFORMATION
  Report Type: 
  Country: None (occurrence: None)
  Receive Date: 20100601
  Receipt Date: 20100518
  Transmission Date: 20101027
  Serious: Yes (Hospitalization, Other)
  Sender: FDA-Public Use
  Company Number: US-ELI_LILLY_AND_COMPANY-US201001003929

PATIENT
  Sex: Female

DRUGS (1)
  1. FORTEO [Suspect]
     Dates: start: 20090101

REACTIONS (21)
  - ALOPECIA [None]
  - ASTHENIA [None]
  - AXILLARY PAIN [None]
  - BONE PAIN [None]
  - CANDIDIASIS [None]
  - DECREASED APPETITE [None]
  - EXTRASYSTOLES [None]
  - FEELING ABNORMAL [None]
  - HOSPITALISATION [None]
  - INSOMNIA [None]
  - MUSCULOSKELETAL CHEST PAIN [None]
  - MYALGIA [None]
  - NAUSEA [None]
  - NEUROPATHY PERIPHERAL [None]
  - NEUTROPENIA [None]
  - NON-HODGKIN'S LYMPHOMA [None]
  - PYREXIA [None]
  - RASH [None]
  - REFLUX OESOPHAGITIS [None]
  - RENAL CELL CARCINOMA [None]
  - WEIGHT DECREASED [None]
